FAERS Safety Report 10705986 (Version 1)
Quarter: 2015Q1

REPORT INFORMATION
  Report Type: Spontaneous
  Country: AR (occurrence: AR)
  Receive Date: 20150113
  Receipt Date: 20150113
  Transmission Date: 20150721
  Serious: Yes (Other)
  Sender: FDA-Public Use
  Company Number: AR-AMGEN-ARGSP2015001919

PATIENT
  Age: 64 Year
  Sex: Male

DRUGS (1)
  1. ENBREL [Suspect]
     Active Substance: ETANERCEPT
     Indication: RHEUMATOID ARTHRITIS
     Dosage: 50 MG, WEEKLY
     Route: 065
     Dates: start: 20120312

REACTIONS (6)
  - Haemorrhage [Recovering/Resolving]
  - Spinal disorder [Not Recovered/Not Resolved]
  - Bone erosion [Not Recovered/Not Resolved]
  - Haematocrit decreased [Recovering/Resolving]
  - Pain [Recovering/Resolving]
  - Limb discomfort [Not Recovered/Not Resolved]

NARRATIVE: CASE EVENT DATE: 201411
